FAERS Safety Report 7451242-2 (Version None)
Quarter: 2011Q2

REPORT INFORMATION
  Report Type: 
  Country: None (occurrence: None)
  Receive Date: 20110502
  Receipt Date: 20110420
  Transmission Date: 20111010
  Serious: Yes (Other)
  Sender: FDA-Public Use
  Company Number: PHHY2010US57544

PATIENT
  Sex: Female
  Weight: 50 kg

DRUGS (1)
  1. RECLAST [Suspect]
     Indication: OSTEOPOROSIS
     Dosage: 5 MG, UNK
     Route: 042
     Dates: start: 20100719

REACTIONS (16)
  - PAIN [None]
  - FEELING ABNORMAL [None]
  - HYPOAESTHESIA [None]
  - GAIT DISTURBANCE [None]
  - DYSSTASIA [None]
  - MUSCULOSKELETAL CHEST PAIN [None]
  - INFLUENZA LIKE ILLNESS [None]
  - ARTHRALGIA [None]
  - BACK PAIN [None]
  - MALAISE [None]
  - HEADACHE [None]
  - BONE PAIN [None]
  - DIZZINESS [None]
  - PAIN IN EXTREMITY [None]
  - MYALGIA [None]
  - PARAESTHESIA [None]
